FAERS Safety Report 8206162-2 (Version None)
Quarter: 2012Q1

REPORT INFORMATION
  Report Type: 
  Country: None (occurrence: None)
  Receive Date: 20120313
  Receipt Date: 20110929
  Transmission Date: 20120608
  Serious: Yes (Congenital Anomaly)
  Sender: FDA-Public Use
  Company Number: VE-ROCHE-1004216

PATIENT
  Age: 17 Month
  Weight: 5.2 kg

DRUGS (1)
  1. ISOTRETINOIN [Suspect]
     Indication: ACNE
     Route: 064

REACTIONS (4)
  - MATERNAL EXPOSURE TIMING UNSPECIFIED [None]
  - CONGENITAL MUSCULOSKELETAL ANOMALY [None]
  - HEART DISEASE CONGENITAL [None]
  - CONGENITAL ANOMALY [None]
